FAERS Safety Report 9262908 (Version 2)
Quarter: 2013Q2

REPORT INFORMATION
  Report Type: Spontaneous
  Country: IT (occurrence: IT)
  Receive Date: 20130430
  Receipt Date: 20130503
  Transmission Date: 20140414
  Serious: Yes (Hospitalization, Other)
  Sender: FDA-Public Use
  Company Number: IT-UCBSA-084230

PATIENT
  Age: 15 Year
  Sex: Male

DRUGS (6)
  1. LEVOCETIRIZINE DIHYDROCHLORIDE [Suspect]
     Dosage: DOSE: 15 DF
     Route: 048
     Dates: start: 20130218, end: 20130218
  2. ZITROMAX [Suspect]
     Dosage: STRENGTH: 500 MG, 3 DF
     Route: 048
     Dates: start: 20130218, end: 20130218
  3. PURSENNID [Suspect]
     Dosage: DOSE: 30 DF
     Route: 048
     Dates: start: 20130218, end: 20130218
  4. PARACETAMOL [Suspect]
     Dosage: DOSE: 4 DF
     Route: 048
     Dates: start: 20130218, end: 20130218
  5. RAMIPRIL [Suspect]
     Dosage: STRENGTH:5 MG; 7 DF
     Route: 048
     Dates: start: 20130218, end: 20130218
  6. ALMOTRIPTAN MALATE [Suspect]
     Dosage: DOSE: 5 DF
     Route: 048
     Dates: start: 20130218, end: 20130218

REACTIONS (5)
  - Confusional state [Unknown]
  - Somnolence [Unknown]
  - Drug abuse [Unknown]
  - Intentional self-injury [Unknown]
  - Overdose [Unknown]
